FAERS Safety Report 22066488 (Version 1)
Quarter: 2023Q1

REPORT INFORMATION
  Report Type: Spontaneous
  Country: US (occurrence: None)
  Receive Date: 20230306
  Receipt Date: 20230306
  Transmission Date: 20230418
  Serious: Yes (Death)
  Sender: FDA-Public Use
  Company Number: None

PATIENT
  Age: 81 Year
  Sex: Female
  Weight: 67.5 kg

DRUGS (3)
  1. GEODON [Suspect]
     Active Substance: ZIPRASIDONE HYDROCHLORIDE\ZIPRASIDONE MESYLATE
     Indication: Product used for unknown indication
     Dosage: OTHER ROUTE : THE NURSING STAFF AT UNC LENOIR INJECTED;?
     Route: 050
     Dates: start: 20190314, end: 20190314
  2. ANASTROZOLE [Concomitant]
     Active Substance: ANASTROZOLE
  3. Tylonoyl [Concomitant]

REACTIONS (2)
  - Dehydration [None]
  - Renal cancer [None]

NARRATIVE: CASE EVENT DATE: 20190314
